FAERS Safety Report 19576811 (Version 1)
Quarter: 2021Q3

REPORT INFORMATION
  Report Type: Report from Study
  Country: US (occurrence: US)
  Receive Date: 20210719
  Receipt Date: 20210719
  Transmission Date: 20211014
  Serious: Yes (Hospitalization, Other)
  Sender: FDA-Public Use
  Company Number: US-GILEAD-2021-0540748

PATIENT
  Age: 62 Year
  Sex: Male

DRUGS (1)
  1. AZTREONAM LYSINE [Suspect]
     Active Substance: AZTREONAM LYSINE
     Indication: CYSTIC FIBROSIS
     Dosage: 75 MG, TID, FOR 28 DAYS
     Route: 055
     Dates: start: 201805

REACTIONS (5)
  - Intentional dose omission [Recovered/Resolved]
  - Lacrimation increased [Not Recovered/Not Resolved]
  - Cystic fibrosis [Unknown]
  - Nasal congestion [Not Recovered/Not Resolved]
  - Dysphonia [Not Recovered/Not Resolved]

NARRATIVE: CASE EVENT DATE: 202010
